FAERS Safety Report 18365865 (Version 1)
Quarter: 2020Q4

REPORT INFORMATION
  Report Type: Spontaneous
  Country: US (occurrence: US)
  Receive Date: 20201009
  Receipt Date: 20201009
  Transmission Date: 20210114
  Serious: Yes (Other)
  Sender: FDA-Public Use
  Company Number: None

PATIENT
  Age: 72 Year
  Sex: Female
  Weight: 66.4 kg

DRUGS (8)
  1. POTASSIUM CHLORIDE CR TABLET 20 MEQ PO DAILY [Concomitant]
     Dates: start: 20200817, end: 20200824
  2. FERRIC GLUCONATE 250 MG IN 0.9% NS 100 ML [Suspect]
     Active Substance: SODIUM FERRIC GLUCONATE COMPLEX
     Indication: IRON DEFICIENCY
     Route: 040
     Dates: start: 20200820, end: 20200820
  3. METOPROLOL SUCCINATE 24 HR TABLET 100 MG PO DAILY [Concomitant]
     Dates: start: 20200817, end: 20200824
  4. PANTOPRAZOLE EC TABLET 40 MG PO DAILY [Concomitant]
     Dates: start: 20200817, end: 20200824
  5. RIVAROXABAN 20 MG TABLET PO QPM [Concomitant]
     Dates: start: 20200817, end: 20200819
  6. ATORVASTATIN 10 MG TABLET PO QPM [Concomitant]
     Dates: start: 20200817, end: 20200824
  7. FUROSEMIDE 40 MG IV Q8HOURS [Concomitant]
     Dates: start: 20200817, end: 20200824
  8. LISINOPRIL 5 MG TABLET PO DAILY [Concomitant]
     Dates: start: 20200817, end: 20200824

REACTIONS (5)
  - Hypotension [None]
  - Infusion related reaction [None]
  - Headache [None]
  - Dizziness [None]
  - Fatigue [None]

NARRATIVE: CASE EVENT DATE: 20200820
